FAERS Safety Report 16902823 (Version 5)
Quarter: 2020Q1

REPORT INFORMATION
  Report Type: Spontaneous
  Country: US (occurrence: US)
  Receive Date: 20191010
  Receipt Date: 20200205
  Transmission Date: 20200409
  Serious: Yes (Other)
  Sender: FDA-Public Use
  Company Number: US-SUN PHARMACEUTICAL INDUSTRIES LTD-2019R1-217996

PATIENT
  Age: 65 Year
  Sex: Female

DRUGS (4)
  1. ELIQUIS [Concomitant]
     Active Substance: APIXABAN
     Indication: PRODUCT USED FOR UNKNOWN INDICATION
     Route: 065
  2. AMBRISENTAN [Suspect]
     Active Substance: AMBRISENTAN
     Indication: PRODUCT USED FOR UNKNOWN INDICATION
     Dosage: 5 MILLIGRAM, QD
     Route: 048
     Dates: start: 20190515
  3. ADCIRCA [Concomitant]
     Active Substance: TADALAFIL
     Indication: PRODUCT USED FOR UNKNOWN INDICATION
     Route: 065
  4. TYVASO [Concomitant]
     Active Substance: TREPROSTINIL
     Indication: PRODUCT USED FOR UNKNOWN INDICATION
     Route: 065

REACTIONS (11)
  - Dyspnoea [Unknown]
  - Headache [Unknown]
  - Oropharyngeal pain [Unknown]
  - Nasal congestion [Unknown]
  - Hypotension [Unknown]
  - Feeling abnormal [Unknown]
  - Upper-airway cough syndrome [Unknown]
  - Dizziness [Unknown]
  - Cough [Unknown]
  - Oxygen saturation decreased [Unknown]
  - Feeling jittery [Unknown]

NARRATIVE: CASE EVENT DATE: 2019
